FAERS Safety Report 9325994 (Version 1)
Quarter: 2013Q2

REPORT INFORMATION
  Report Type: Report from Study
  Country: UZ (occurrence: UZ)
  Receive Date: 20130604
  Receipt Date: 20130604
  Transmission Date: 20140414
  Serious: Yes (Hospitalization)
  Sender: FDA-Public Use
  Company Number: PHHY2013UZ055773

PATIENT
  Sex: Male

DRUGS (1)
  1. GLIVEC [Suspect]
     Indication: CHRONIC MYELOID LEUKAEMIA
     Dosage: 400 MG,

REACTIONS (4)
  - Gliosis [Unknown]
  - Stomatitis [Unknown]
  - Sepsis [Unknown]
  - Blast crisis in myelogenous leukaemia [Unknown]
